FAERS Safety Report 14562346 (Version 1)
Quarter: 2018Q1

REPORT INFORMATION
  Report Type: Report from Study
  Country: US (occurrence: US)
  Receive Date: 20180222
  Receipt Date: 20180222
  Transmission Date: 20180509
  Serious: Yes (Hospitalization, Other)
  Sender: FDA-Public Use
  Company Number: US-JNJFOC-20170500793

PATIENT
  Age: 81 Year
  Sex: Female

DRUGS (18)
  1. IMBRUVICA [Suspect]
     Active Substance: IBRUTINIB
     Indication: CHRONIC LYMPHOCYTIC LEUKAEMIA
     Route: 048
     Dates: start: 20170422, end: 20180208
  2. BACTRIM [Concomitant]
     Active Substance: SULFAMETHOXAZOLE\TRIMETHOPRIM
  3. TYLENOL [Concomitant]
     Active Substance: ACETAMINOPHEN
  4. CALCIUM [Concomitant]
     Active Substance: CALCIUM
  5. SUCRALFATE. [Concomitant]
     Active Substance: SUCRALFATE
  6. IMBRUVICA [Suspect]
     Active Substance: IBRUTINIB
     Indication: CHRONIC LYMPHOCYTIC LEUKAEMIA
     Route: 048
     Dates: start: 20170420
  7. TOPROL XL [Concomitant]
     Active Substance: METOPROLOL SUCCINATE
  8. PROTONIX [Concomitant]
     Active Substance: PANTOPRAZOLE SODIUM
  9. VITAMIN C [Concomitant]
     Active Substance: ASCORBIC ACID
  10. SYNTHROID [Concomitant]
     Active Substance: LEVOTHYROXINE SODIUM
  11. VITAMIN D [Concomitant]
     Active Substance: CHOLECALCIFEROL
  12. ESOMEPRAZOLE [Concomitant]
     Active Substance: ESOMEPRAZOLE
  13. CLOBETASOL [Concomitant]
     Active Substance: CLOBETASOL
  14. XARELTO [Concomitant]
     Active Substance: RIVAROXABAN
  15. TRIAMCINOLONE [Concomitant]
     Active Substance: TRIAMCINOLONE
  16. MULTIVITAMINS [Concomitant]
     Active Substance: VITAMINS
  17. METFORMIN [Concomitant]
     Active Substance: METFORMIN HYDROCHLORIDE
  18. CALCIUM CARBONATE W/COLECALCIFEROL [Concomitant]
     Active Substance: CALCIUM CARBONATE\CHOLECALCIFEROL

REACTIONS (24)
  - Skin discolouration [Unknown]
  - Arthralgia [Unknown]
  - Abdominal distension [Unknown]
  - Disturbance in attention [Recovered/Resolved]
  - Rash macular [Unknown]
  - Pain in extremity [Recovered/Resolved]
  - Chest pain [Recovered/Resolved]
  - Dizziness [Recovered/Resolved]
  - Petechiae [Unknown]
  - Gastrointestinal polyp [Unknown]
  - Constipation [Unknown]
  - Diarrhoea [Not Recovered/Not Resolved]
  - Vomiting [Unknown]
  - Blood magnesium decreased [Unknown]
  - Dysphagia [Unknown]
  - Glycosylated haemoglobin increased [Not Recovered/Not Resolved]
  - Infection [Unknown]
  - Rectal haemorrhage [Recovered/Resolved]
  - Visual impairment [Unknown]
  - Extra dose administered [Recovered/Resolved]
  - Peripheral swelling [Unknown]
  - Blood sodium decreased [Unknown]
  - Swelling [Unknown]
  - Musculoskeletal pain [Recovered/Resolved]

NARRATIVE: CASE EVENT DATE: 2017
